FAERS Safety Report 8048674-0 (Version None)
Quarter: 2012Q1

REPORT INFORMATION
  Report Type: 
  Country: None (occurrence: None)
  Receive Date: 20120117
  Receipt Date: 20120109
  Transmission Date: 20120608
  Serious: Yes (Congenital Anomaly, Other)
  Sender: FDA-Public Use
  Company Number: US-UCBSA-049373

PATIENT
  Sex: Female
  Weight: 1.67 kg

DRUGS (2)
  1. KEPPRA [Suspect]
     Indication: EPILEPSY
     Dosage: DOSE: 1000 MG
     Route: 064
     Dates: start: 20080115, end: 20080718
  2. KEPPRA [Suspect]
     Dosage: DOSE: 4500 MG
     Route: 064
     Dates: end: 20080115

REACTIONS (4)
  - LOW BIRTH WEIGHT BABY [None]
  - FOETAL EXPOSURE DURING PREGNANCY [None]
  - PREMATURE BABY [None]
  - INTESTINAL ATRESIA [None]
